FAERS Safety Report 4325564-8 (Version None)
Quarter: 2004Q1

REPORT INFORMATION
  Report Type: 
  Country: None (occurrence: None)
  Receive Date: 20040329
  Receipt Date: 20040315
  Transmission Date: 20041129
  Serious: Yes (Hospitalization, Other)
  Sender: FDA-Public Use
  Company Number: 200412033US

PATIENT
  Sex: Male
  Weight: 120 kg

DRUGS (6)
  1. LANTUS [Suspect]
     Indication: DIABETES MELLITUS NON-INSULIN-DEPENDENT
     Dosage: DOSE UNIT: UNITS
     Route: 058
     Dates: start: 20031121
  2. IBUPROFEN [Concomitant]
     Route: 048
     Dates: start: 20040307
  3. ZESTORETIC [Concomitant]
     Dosage: DOSE: 80/125
     Route: 048
     Dates: start: 20001211
  4. GLUCOTROL XL [Concomitant]
     Route: 048
     Dates: start: 20001224
  5. METOPROLOL [Concomitant]
     Route: 048
     Dates: start: 20030703
  6. REGLAN [Concomitant]
     Route: 048
     Dates: start: 20020103

REACTIONS (21)
  - ARTHRALGIA [None]
  - ASPARTATE AMINOTRANSFERASE INCREASED [None]
  - BETA HAEMOLYTIC STREPTOCOCCAL INFECTION [None]
  - BLOOD ALKALINE PHOSPHATASE INCREASED [None]
  - BLOOD GLUCOSE INCREASED [None]
  - CANDIDIASIS [None]
  - CELLULITIS [None]
  - CEREBRAL INFARCTION [None]
  - CEREBROVASCULAR ACCIDENT [None]
  - CULTURE WOUND POSITIVE [None]
  - DEHYDRATION [None]
  - DIABETIC COMPLICATION [None]
  - FALL [None]
  - HAEMATOCRIT DECREASED [None]
  - HAEMOGLOBIN DECREASED [None]
  - HYPONATRAEMIA [None]
  - JOINT STIFFNESS [None]
  - LEUKOCYTOSIS [None]
  - RENAL FAILURE [None]
  - SEPSIS [None]
  - STAPHYLOCOCCAL INFECTION [None]
